FAERS Safety Report 5078052-8 (Version None)
Quarter: 2006Q3

REPORT INFORMATION
  Report Type: 
  Country: None (occurrence: None)
  Receive Date: 20060808
  Receipt Date: 20060728
  Transmission Date: 20061208
  Serious: Yes (Life-Threatening)
  Sender: FDA-Public Use
  Company Number: 228220

PATIENT
  Age: 50 Year
  Sex: Male

DRUGS (1)
  1. ACTIVASE [Suspect]
     Indication: ISCHAEMIC STROKE
     Dosage: 40 MG, SINGLE, INTRAVENOUS
     Route: 042
     Dates: start: 20060313, end: 20060313

REACTIONS (6)
  - ACUTE RESPIRATORY FAILURE [None]
  - BRADYCARDIA [None]
  - CEREBRAL INFARCTION [None]
  - COMA [None]
  - CYANOSIS [None]
  - FALL [None]
